FAERS Safety Report 9925161 (Version 1)
Quarter: 2014Q1

REPORT INFORMATION
  Report Type: Spontaneous
  Country: US (occurrence: None)
  Receive Date: 20140220
  Receipt Date: 20140220
  Transmission Date: 20141002
  Serious: Yes (Life-Threatening)
  Sender: FDA-Public Use
  Company Number: 2014P1001331

PATIENT
  Age: 56 Year
  Sex: Female

DRUGS (7)
  1. LIDOCAINE [Suspect]
     Indication: IMPLANTABLE DEFIBRILLATOR INSERTION
     Route: 058
  2. CARVEDIOLOL [Concomitant]
  3. CANDESARTAN [Concomitant]
  4. HYDRALAZINE [Concomitant]
  5. ISOSORBIDE DINITRATE [Concomitant]
  6. MIDAZOLAM [Concomitant]
  7. FENTANYL [Concomitant]

REACTIONS (10)
  - Toxicity to various agents [None]
  - Grand mal convulsion [None]
  - Blood pressure decreased [None]
  - Heart rate decreased [None]
  - Oxygen saturation decreased [None]
  - Carotid pulse decreased [None]
  - Pulseless electrical activity [None]
  - Metabolic acidosis [None]
  - Respiratory acidosis [None]
  - Drug level increased [None]
